FAERS Safety Report 19273268 (Version 2)
Quarter: 2022Q2

REPORT INFORMATION
  Report Type: Spontaneous
  Country: JP (occurrence: JP)
  Receive Date: 20210519
  Receipt Date: 20220613
  Transmission Date: 20220720
  Serious: Yes (Hospitalization, Other)
  Sender: FDA-Public Use
  Company Number: JP-ACTELION-A-CH2018-176963

PATIENT
  Age: 78 Year
  Sex: Female
  Weight: 32.3 kg

DRUGS (18)
  1. UPTRAVI [Suspect]
     Active Substance: SELEXIPAG
     Indication: Pulmonary arterial hypertension
     Dosage: 0.2 MG, BID
     Route: 048
     Dates: start: 20180612, end: 20190408
  2. UPTRAVI [Suspect]
     Active Substance: SELEXIPAG
     Dosage: 0.4 MG, BID
     Route: 048
     Dates: start: 20190409, end: 20210526
  3. ADCIRCA [Concomitant]
     Active Substance: TADALAFIL
     Indication: Pulmonary arterial hypertension
     Dosage: 20 MG, BID
     Route: 065
     Dates: end: 20210526
  4. AMBRISENTAN [Concomitant]
     Active Substance: AMBRISENTAN
     Indication: Pulmonary arterial hypertension
     Dosage: 10 MG, QD
     Dates: end: 20210526
  5. AMLODIPINE [Concomitant]
     Active Substance: AMLODIPINE BESYLATE
     Dosage: 5 MG, QD
     Dates: end: 20180721
  6. ELIQUIS [Concomitant]
     Active Substance: APIXABAN
     Dosage: 5 MG, QD
     Dates: end: 20181204
  7. AZOSEMIDE [Concomitant]
     Active Substance: AZOSEMIDE
     Dosage: 30 MG, QD
     Dates: end: 20210526
  8. AZOSEMIDE [Concomitant]
     Active Substance: AZOSEMIDE
     Dosage: 10 MG, QD
  9. ADRENAL [Concomitant]
     Active Substance: EPINEPHRINE
  10. POTASSIUM GLUCONATE [Concomitant]
     Active Substance: POTASSIUM GLUCONATE
     Indication: Hypokalaemia
     Dates: end: 20210526
  11. VONOPRAZAN FUMARATE [Concomitant]
     Active Substance: VONOPRAZAN FUMARATE
     Indication: Prophylaxis
     Dates: end: 20210526
  12. PREDONINE [Concomitant]
     Active Substance: PREDNISOLONE
     Dates: end: 20210526
  13. ALFAROL [Concomitant]
     Active Substance: ALFACALCIDOL
     Indication: Prophylaxis
     Dates: end: 20210526
  14. SULFAMETHOXAZOLE\TRIMETHOPRIM [Concomitant]
     Active Substance: SULFAMETHOXAZOLE\TRIMETHOPRIM
     Indication: Prophylaxis
     Dates: end: 20210526
  15. LEVOMEPROMAZINE MALEATE [Concomitant]
     Active Substance: LEVOMEPROMAZINE MALEATE
     Indication: Depression
     Dates: end: 20210526
  16. LUNESTA [Concomitant]
     Active Substance: ESZOPICLONE
     Indication: Insomnia
     Dates: end: 20210526
  17. CLONAZEPAM [Concomitant]
     Active Substance: CLONAZEPAM
     Indication: Autonomic seizure
     Dates: end: 20210526
  18. CLONAZEPAM [Concomitant]
     Active Substance: CLONAZEPAM
     Dates: start: 202006

REACTIONS (4)
  - Pneumonia [Recovered/Resolved]
  - Anaemia [Recovered/Resolved]
  - Transfusion [Unknown]
  - Dyspnoea exertional [Unknown]

NARRATIVE: CASE EVENT DATE: 20180720
